FAERS Safety Report 5526637-4 (Version None)
Quarter: 2007Q4

REPORT INFORMATION
  Report Type: 
  Country: None (occurrence: None)
  Receive Date: 20071127
  Receipt Date: 20071116
  Transmission Date: 20080405
  Serious: Yes (Hospitalization, Other)
  Sender: FDA-Public Use
  Company Number: US-AMGEN-QUU253135

PATIENT
  Sex: Male

DRUGS (1)
  1. ENBREL [Suspect]
     Indication: RHEUMATOID ARTHRITIS
     Route: 058
     Dates: start: 20040603

REACTIONS (5)
  - DEVICE BREAKAGE [None]
  - INTERVERTEBRAL DISC PROTRUSION [None]
  - LIMB OPERATION [None]
  - RHEUMATOID ARTHRITIS [None]
  - WEIGHT DECREASED [None]
